FAERS Safety Report 5609095-0 (Version None)
Quarter: 2008Q1

REPORT INFORMATION
  Report Type: 
  Country: None (occurrence: None)
  Receive Date: 20080131
  Receipt Date: 20080122
  Transmission Date: 20080703
  Serious: Yes (Other)
  Sender: FDA-Public Use
  Company Number: FR-ELI_LILLY_AND_COMPANY-FR200801005417

PATIENT
  Age: 73 Year
  Sex: Female

DRUGS (1)
  1. ZYPREXA [Suspect]
     Route: 048

REACTIONS (1)
  - MUSCULAR WEAKNESS [None]
